FAERS Safety Report 7742682-2 (Version None)
Quarter: 2011Q3

REPORT INFORMATION
  Report Type: 
  Country: None (occurrence: None)
  Receive Date: 20110912
  Receipt Date: 20110902
  Transmission Date: 20111222
  Serious: Yes (Hospitalization, Other)
  Sender: FDA-Public Use
  Company Number: JP-JNJFOC-20110812550

PATIENT
  Age: 22 Year
  Sex: Male

DRUGS (5)
  1. AZROGEN [Concomitant]
     Route: 048
  2. BIPERIDEN HYDROCHLORIDE TAB [Concomitant]
     Route: 065
     Dates: start: 20110512
  3. INVEGA [Suspect]
     Indication: SCHIZOPHRENIA
     Route: 048
     Dates: start: 20110512
  4. INVEGA [Suspect]
     Route: 048
     Dates: start: 20110428, end: 20110504
  5. SILECE [Concomitant]
     Route: 048

REACTIONS (5)
  - SEPSIS [None]
  - DYSPHAGIA [None]
  - DEPRESSED LEVEL OF CONSCIOUSNESS [None]
  - PYREXIA [None]
  - PNEUMONIA ASPIRATION [None]
